FAERS Safety Report 9984539 (Version 2)
Quarter: 2014Q2

REPORT INFORMATION
  Report Type: Report from Study
  Country: US (occurrence: US)
  Receive Date: 20140307
  Receipt Date: 20140515
  Transmission Date: 20141212
  Serious: Yes (Other)
  Sender: FDA-Public Use
  Company Number: US-JNJFOC-20140301267

PATIENT
  Age: 27 Year
  Sex: Female
  Weight: 99.79 kg

DRUGS (8)
  1. REMICADE [Suspect]
     Indication: CROHN^S DISEASE
     Dosage: LOADING DOSES
     Route: 042
     Dates: start: 20140204, end: 20140217
  2. REMICADE [Suspect]
     Indication: CROHN^S DISEASE
     Route: 042
     Dates: start: 2010
  3. ENTOCORT [Concomitant]
     Indication: CROHN^S DISEASE
     Route: 048
     Dates: start: 201311
  4. ZOFRAN [Concomitant]
     Indication: NAUSEA
     Dosage: AS NEEDED; ALSO REPORTED AS 4 YEARS
     Route: 048
     Dates: start: 2004
  5. PHENERGAN [Concomitant]
     Indication: NAUSEA
     Dosage: AS NEEDED; ALSO REPORTED AS 4 YEARS
     Route: 048
     Dates: start: 2004
  6. HYDROMORPHONE [Concomitant]
     Indication: PAIN
     Dosage: AS NEEDED; 2 YEARS
     Route: 048
     Dates: start: 2012
  7. DEXILANT [Concomitant]
     Indication: GASTROOESOPHAGEAL REFLUX DISEASE
     Dosage: 10 YEARS
     Route: 048
     Dates: start: 201311
  8. RECLIPSEN [Concomitant]
     Indication: CONTRACEPTION
     Route: 048
     Dates: start: 2004

REACTIONS (10)
  - Swollen tongue [Recovered/Resolved]
  - Infusion related reaction [Recovered/Resolved]
  - Dyspnoea [Recovered/Resolved]
  - Swelling face [Recovered/Resolved]
  - Blood pressure increased [Recovered/Resolved]
  - Heart rate increased [Recovered/Resolved]
  - Urticaria [Recovered/Resolved]
  - Arthralgia [Recovered/Resolved]
  - Influenza [Recovered/Resolved]
  - Influenza like illness [Recovered/Resolved]
